FAERS Safety Report 7633568-2 (Version None)
Quarter: 2011Q3

REPORT INFORMATION
  Report Type: 
  Country: None (occurrence: None)
  Receive Date: 20110725
  Receipt Date: 20110701
  Transmission Date: 20111222
  Serious: Yes (Hospitalization)
  Sender: FDA-Public Use
  Company Number: US-GLAXOSMITHKLINE-A0863824A

PATIENT
  Sex: Female
  Weight: 73.2 kg

DRUGS (24)
  1. ANEXSIA [Concomitant]
  2. LASIX [Concomitant]
  3. ELAVIL [Concomitant]
  4. DIOVAN [Concomitant]
  5. LIPITOR [Concomitant]
  6. AMARYL [Concomitant]
  7. MOBIC [Concomitant]
  8. PLAVIX [Concomitant]
  9. VIOXX [Concomitant]
  10. ACTOS [Concomitant]
  11. GLUCOPHAGE [Concomitant]
  12. TOPROL-XL [Concomitant]
  13. ASPIRIN [Concomitant]
  14. LOTREL [Concomitant]
  15. GLUCOTROL XL [Concomitant]
  16. AVANDAMET [Suspect]
     Indication: DIABETES MELLITUS
     Route: 048
     Dates: start: 20020101
  17. ATIVAN [Concomitant]
  18. LANTUS [Concomitant]
  19. HUMULIN N [Concomitant]
  20. PLENDIL [Concomitant]
  21. ACCURETIC [Concomitant]
  22. AVANDIA [Suspect]
     Indication: TYPE 2 DIABETES MELLITUS
     Dosage: 16MG PER DAY
     Route: 048
     Dates: start: 20000101
  23. BENICAR [Concomitant]
  24. NORVASC [Concomitant]

REACTIONS (4)
  - MYOCARDIAL INFARCTION [None]
  - MULTIPLE FRACTURES [None]
  - CEREBROVASCULAR ACCIDENT [None]
  - CARDIAC FAILURE CONGESTIVE [None]
